FAERS Safety Report 24543930 (Version 1)
Quarter: 2024Q4

REPORT INFORMATION
  Report Type: Spontaneous
  Country: CN (occurrence: CN)
  Receive Date: 20241024
  Receipt Date: 20241024
  Transmission Date: 20250115
  Serious: Yes (Hospitalization, Other)
  Sender: DR REDDYS
  Company Number: CN-RDY-LIT/CHN/24/0015581

PATIENT
  Age: 81 Year
  Sex: Male

DRUGS (1)
  1. CLOPIDOGREL [Suspect]
     Active Substance: CLOPIDOGREL BISULFATE
     Indication: Coronary artery disease
     Dosage: 75 MG, ONCE DAILY
     Route: 048
     Dates: end: 20220530

REACTIONS (1)
  - Retroperitoneal haematoma [Unknown]

NARRATIVE: CASE EVENT DATE: 20220101
